FAERS Safety Report 10017411 (Version 4)
Quarter: 2014Q2

REPORT INFORMATION
  Report Type: Spontaneous
  Country: US (occurrence: US)
  Receive Date: 20140318
  Receipt Date: 20140410
  Transmission Date: 20141212
  Serious: No
  Sender: FDA-Public Use
  Company Number: US-PFIZER INC-2014074578

PATIENT
  Age: 69 Year
  Sex: Female
  Weight: 115.19 kg

DRUGS (3)
  1. TIKOSYN [Suspect]
     Indication: ATRIAL FIBRILLATION
     Dosage: 500 UG, 2X/DAY (AT 9:00 AM AND AT 9:00 PM)
     Dates: start: 20140303
  2. TIKOSYN [Suspect]
     Indication: ARRHYTHMIA
  3. ATIVAN [Concomitant]

REACTIONS (4)
  - Insomnia [Unknown]
  - Drug ineffective [Not Recovered/Not Resolved]
  - Decreased appetite [Recovered/Resolved]
  - Weight loss poor [Unknown]
